FAERS Safety Report 9434976 (Version 1)
Quarter: 2013Q3

REPORT INFORMATION
  Report Type: Spontaneous
  Country: GB (occurrence: None)
  Receive Date: 20130730
  Receipt Date: 20130730
  Transmission Date: 20140515
  Serious: Yes (Disabling)
  Sender: FDA-Public Use
  Company Number: 2013GMK006294

PATIENT
  Age: 82 Year
  Sex: Female
  Weight: 61.5 kg

DRUGS (8)
  1. GABAPENTIN (GABAPENTIN) UNKNOWN [Suspect]
     Indication: PRODUCT USED FOR UNKNOWN INDICATION
     Dates: start: 20130402
  2. GLANDOSANE (CALCIUM CHLORIDE DIHYDRATE, CARMELLOSE SODIUM, MAGNESIUM CHLORIDE HEXAHYDRATE, POTASSIUM CHLORIDE, POTASSIUM PHOSPHATE DIBASIC, SODIUM CHLORIDE, SORBITOL) 06/12/2013 TO UNK [Concomitant]
  3. MOVELAT?/00479601/ (ADRENAL CORTICAL EXTRACT, MUCOPOLYSACCHARIDE POLYSULFURIC ACID ESTER, SALICYLIC ACID) 05/10/2013 TO UNK [Concomitant]
  4. NAPROXEN (NAPROXEN) [Concomitant]
  5. OMEPRAZOLE (OMEPRAZOLE) [Concomitant]
  6. PREDNISOLONE (PREDNISOLONE) [Concomitant]
  7. SOLIFENACIN SUCCINATE (SOLIFENANCIN SUCCINATE) [Concomitant]
  8. ALGESAL /00443701/ (DIETHYLAMINE SALICYLATE) [Concomitant]

REACTIONS (10)
  - C-reactive protein increased [None]
  - Renal impairment [None]
  - Blood viscosity increased [None]
  - Dry skin [None]
  - Thirst [None]
  - Feeling abnormal [None]
  - Weight decreased [None]
  - Dry mouth [None]
  - Headache [None]
  - Malaise [None]
